FAERS Safety Report 10158064 (Version 3)
Quarter: 2014Q2

REPORT INFORMATION
  Report Type: Spontaneous
  Country: DE (occurrence: DE)
  Receive Date: 20140507
  Receipt Date: 20140609
  Transmission Date: 20141212
  Serious: Yes (Death)
  Sender: FDA-Public Use
  Company Number: DE-GLAXOSMITHKLINE-D0076084A

PATIENT
  Age: 38 Year
  Sex: Female
  Weight: 60 kg

DRUGS (9)
  1. BENLYSTA [Suspect]
     Indication: SYSTEMIC LUPUS ERYTHEMATOSUS
     Route: 042
     Dates: start: 20120112, end: 20120607
  2. QUENSYL [Concomitant]
     Indication: SYSTEMIC LUPUS ERYTHEMATOSUS
     Dosage: 200MG PER DAY
     Route: 048
  3. DAPSON [Concomitant]
     Indication: SYSTEMIC LUPUS ERYTHEMATOSUS
     Dosage: 50MG PER DAY
     Route: 048
  4. PREDNISOLON [Concomitant]
     Indication: SYSTEMIC LUPUS ERYTHEMATOSUS
     Dosage: 7.5MG PER DAY
     Route: 065
  5. OMEP [Concomitant]
     Indication: GASTRITIS
     Dosage: 40MG PER DAY
     Route: 048
  6. METOPROLOL [Concomitant]
     Indication: HYPERTENSION
     Dosage: 47.5MG PER DAY
     Route: 048
  7. CELEBREX [Concomitant]
     Dosage: 200MG AS REQUIRED
     Route: 048
  8. RANITIDIN [Concomitant]
     Dosage: 50MG PER DAY
     Route: 065
     Dates: start: 20120412, end: 20120509
  9. TAVEGIL [Concomitant]
     Dosage: 2MG PER DAY
     Route: 065
     Dates: start: 20120607

REACTIONS (1)
  - Myocardial infarction [Fatal]
